FAERS Safety Report 22741509 (Version 2)
Quarter: 2024Q4

REPORT INFORMATION
  Report Type: Report from Study
  Country: US (occurrence: US)
  Receive Date: 20230724
  Receipt Date: 20241028
  Transmission Date: 20250115
  Serious: Yes (Hospitalization)
  Sender: UCB
  Company Number: US-UCBSA-2022054394

PATIENT
  Age: 9 Year
  Sex: Male
  Weight: 27.9 kg

DRUGS (3)
  1. FINTEPLA [Suspect]
     Active Substance: FENFLURAMINE
     Indication: Lennox-Gastaut syndrome
     Dosage: 3.5 MILLILITER, 2X/DAY (BID)
  2. FINTEPLA [Suspect]
     Active Substance: FENFLURAMINE
     Dosage: 3.5 MILLILITER, 2X/DAY (BID)
     Dates: start: 202106
  3. FINTEPLA [Suspect]
     Active Substance: FENFLURAMINE
     Dosage: 0.63MG/KG/DAY
     Dates: start: 202210

REACTIONS (2)
  - Hypophagia [Not Recovered/Not Resolved]
  - Alopecia [Not Recovered/Not Resolved]

NARRATIVE: CASE EVENT DATE: 20220912
